FAERS Safety Report 17068816 (Version 1)
Quarter: 2019Q4

REPORT INFORMATION
  Report Type: Spontaneous
  Country: US (occurrence: US)
  Receive Date: 20191025
  Receipt Date: 20191025
  Transmission Date: 20200122
  Serious: No
  Sender: FDA-Public Use
  Company Number: None

PATIENT
  Age: 80 Year
  Sex: Female

DRUGS (1)
  1. COSENTYX [Suspect]
     Active Substance: SECUKINUMAB
     Route: 058
     Dates: start: 20190424

REACTIONS (5)
  - Hyperhidrosis [None]
  - Pain [None]
  - Headache [None]
  - Therapy cessation [None]
  - Fatigue [None]

NARRATIVE: CASE EVENT DATE: 20191025
